FAERS Safety Report 24976234 (Version 1)
Quarter: 2025Q1

REPORT INFORMATION
  Report Type: Spontaneous
  Country: QA (occurrence: QA)
  Receive Date: 20250217
  Receipt Date: 20250217
  Transmission Date: 20250409
  Serious: Yes (Death)
  Sender: CHIESI
  Company Number: QA-CHIESI-2025CHF00961

PATIENT
  Sex: Female

DRUGS (1)
  1. HERBALS [Suspect]
     Active Substance: HERBALS
     Indication: Epidermolysis bullosa
     Route: 061

REACTIONS (2)
  - Death [Fatal]
  - Off label use [Recovered/Resolved]

NARRATIVE: CASE EVENT DATE: 20241201
